FAERS Safety Report 9642460 (Version 3)
Quarter: 2014Q1

REPORT INFORMATION
  Report Type: Spontaneous
  Country: US (occurrence: US)
  Receive Date: 20131024
  Receipt Date: 20140307
  Transmission Date: 20141002
  Serious: Yes (Hospitalization)
  Sender: FDA-Public Use
  Company Number: US-BRISTOL-MYERS SQUIBB COMPANY-19638329

PATIENT
  Age: 66 Year
  Sex: Male

DRUGS (16)
  1. BYETTA [Suspect]
     Indication: TYPE 2 DIABETES MELLITUS
     Dates: start: 20051027, end: 200712
  2. METFORMIN [Concomitant]
  3. AMARYL [Concomitant]
  4. ROSIGLITAZONE [Concomitant]
  5. LYRICA [Concomitant]
  6. LISINOPRIL [Concomitant]
  7. FELODIPINE [Concomitant]
  8. TRICOR [Concomitant]
  9. SIMVASTATIN [Concomitant]
  10. ARTHROTEC [Concomitant]
     Dosage: 1DF:75 UNITS NOS
  11. ULTRACET [Concomitant]
     Dosage: 1DF:2 TABS
  12. LORATADINE [Concomitant]
  13. HYDROCHLOROTHIAZIDE [Concomitant]
  14. TERAZOSIN [Concomitant]
  15. MULTIVITAMIN [Concomitant]
  16. ASPIRIN [Concomitant]

REACTIONS (1)
  - Pancreatic neuroendocrine tumour [Unknown]
